FAERS Safety Report 9508423 (Version 1)
Quarter: 2013Q1

REPORT INFORMATION
  Report Type: Spontaneous
  Country: US (occurrence: None)
  Receive Date: 20130305
  Receipt Date: 20130305
  Transmission Date: 20140127
  Serious: Yes (Hospitalization, Other)
  Sender: FDA-Public Use
  Company Number: 163-21880-12111001

PATIENT
  Age: 65 Year
  Sex: Male

DRUGS (1)
  1. REVLIMID (LENALIDOMIDE) [Suspect]
     Indication: PRODUCT USED FOR UNKNOWN INDICATION
     Dosage: 21 IN 21 D
     Route: 048
     Dates: start: 20120906, end: 2012

REACTIONS (1)
  - Pneumonia [None]
